FAERS Safety Report 17648049 (Version 1)
Quarter: 2020Q2

REPORT INFORMATION
  Report Type: Report from Study
  Country: US (occurrence: US)
  Receive Date: 20200409
  Receipt Date: 20200409
  Transmission Date: 20200713
  Serious: Yes (Hospitalization)
  Sender: FDA-Public Use
  Company Number: US-AUROBINDO-AUR-APL-2020-016528

PATIENT
  Age: 73 Year
  Sex: Male

DRUGS (1)
  1. LEVETIRACETAM INJECTION USP [Suspect]
     Active Substance: LEVETIRACETAM
     Indication: SEIZURE PROPHYLAXIS
     Dosage: 1000 MILLIGRAM
     Route: 042

REACTIONS (2)
  - Confusional state [Recovered/Resolved]
  - Behaviour disorder [Recovered/Resolved]
